FAERS Safety Report 9018048 (Version 1)
Quarter: 2013Q1

REPORT INFORMATION
  Report Type: Spontaneous
  Country: US (occurrence: None)
  Receive Date: 20130110
  Receipt Date: 20130110
  Transmission Date: 20140127
  Serious: No
  Sender: FDA-Public Use
  Company Number: None

PATIENT
  Sex: Female
  Weight: 48.54 kg

DRUGS (2)
  1. CIPRO [Suspect]
     Route: 042
  2. IV FLAGYL + D51/2 IV [Concomitant]

REACTIONS (9)
  - Hallucination [None]
  - Nausea [None]
  - Blood pressure decreased [None]
  - Crying [None]
  - Pain [None]
  - Photophobia [None]
  - Tinnitus [None]
  - Headache [None]
  - Asthenia [None]
